FAERS Safety Report 13947246 (Version 4)
Quarter: 2017Q4

REPORT INFORMATION
  Report Type: Spontaneous
  Country: JP (occurrence: JP)
  Receive Date: 20170907
  Receipt Date: 20171029
  Transmission Date: 20180320
  Serious: Yes (Disabling, Other)
  Sender: FDA-Public Use
  Company Number: JP-AMGEN-JPNSP2017124527

PATIENT
  Age: 96 Year
  Sex: Female
  Weight: 41 kg

DRUGS (11)
  1. PRALIA [Suspect]
     Active Substance: DENOSUMAB
     Indication: OSTEOPOROSIS
     Dosage: 60 MG, Q6MO
     Route: 058
     Dates: start: 20170718, end: 20170718
  2. SHIGMABITAN [Concomitant]
     Dosage: 2 DF, QID
     Route: 048
  3. BONVIVA [Suspect]
     Active Substance: IBANDRONATE SODIUM
     Dosage: 1 MG, ONCE EVERY 1 MO
     Route: 042
     Dates: start: 20160316, end: 20170601
  4. BONVIVA [Suspect]
     Active Substance: IBANDRONATE SODIUM
     Indication: PRODUCT USED FOR UNKNOWN INDICATION
     Dosage: UNK
     Route: 065
     Dates: start: 2014
  5. EDIROL [Concomitant]
     Active Substance: ELDECALCITOL
     Dosage: 0.75 MUG, QD
     Route: 048
  6. SELBEX [Concomitant]
     Active Substance: TEPRENONE
     Dosage: 50 MG, TID
     Route: 048
  7. MAGNESIUM HYDROXIDE. [Concomitant]
     Active Substance: MAGNESIUM HYDROXIDE
     Dosage: 250 MG, QID
     Route: 048
  8. BONVIVA [Suspect]
     Active Substance: IBANDRONATE SODIUM
     Dosage: UNK 4 DOSES
     Route: 065
     Dates: start: 201501, end: 201505
  9. NIVADIL [Concomitant]
     Active Substance: NILVADIPINE
     Dosage: 4 MG, QD
     Route: 048
  10. NICORANDIL [Concomitant]
     Active Substance: NICORANDIL
     Dosage: 5 MG, BID
     Route: 048
  11. FRANDOL [Concomitant]
     Active Substance: ISOSORBIDE DINITRATE
     Dosage: 40 MG, UNK
     Route: 062

REACTIONS (5)
  - Deafness [Recovering/Resolving]
  - Eye discharge [Recovering/Resolving]
  - Lacrimation increased [Recovering/Resolving]
  - Tinnitus [Not Recovered/Not Resolved]
  - Pain in extremity [Recovered/Resolved]

NARRATIVE: CASE EVENT DATE: 201707
